FAERS Safety Report 21978282 (Version 1)
Quarter: 2023Q1

REPORT INFORMATION
  Report Type: Spontaneous
  Country: US (occurrence: None)
  Receive Date: 20230209
  Receipt Date: 20230209
  Transmission Date: 20230418
  Serious: Yes (Death, Life-Threatening, Hospitalization)
  Sender: FDA-Public Use
  Company Number: None

PATIENT
  Age: 87 Year
  Sex: Male
  Weight: 72.9 kg

DRUGS (12)
  1. ELIQUIS [Suspect]
     Active Substance: APIXABAN
     Indication: Atrial fibrillation
     Dosage: OTHER QUANTITY : 1 TABLET(S);?1 TABLET TWICE A DAY ORAL?
     Route: 048
     Dates: start: 20220407, end: 20230119
  2. FLOMAX [Concomitant]
     Active Substance: TAMSULOSIN HYDROCHLORIDE
  3. CARVEDILOL [Concomitant]
     Active Substance: CARVEDILOL
  4. DUONEB [Concomitant]
     Active Substance: ALBUTEROL SULFATE\IPRATROPIUM BROMIDE
  5. BUDESONIDE [Concomitant]
     Active Substance: BUDESONIDE
  6. POTASSIUM [Concomitant]
     Active Substance: POTASSIUM
  7. PREDNISONE [Concomitant]
     Active Substance: PREDNISONE
  8. IRON [Concomitant]
  9. VITAMIN D [Concomitant]
     Active Substance: VITAMIN D NOS
  10. VITAMIN B COMPLEX [Concomitant]
     Active Substance: CYANOCOBALAMIN\DEXPANTHENOL\NIACINAMIDE\PYRIDOXINE HYDROCHLORIDE\RIBOFLAVIN 5^-PHOSPHATE SODIUM\THIA
  11. CULTURELLE [Concomitant]
  12. IRON [Concomitant]
     Active Substance: IRON

REACTIONS (5)
  - Haemoglobin decreased [None]
  - Blood iron decreased [None]
  - Internal haemorrhage [None]
  - Therapy cessation [None]
  - Cerebrovascular accident [None]

NARRATIVE: CASE EVENT DATE: 20230117
